FAERS Safety Report 18902946 (Version 1)
Quarter: 2021Q1

REPORT INFORMATION
  Report Type: Spontaneous
  Country: US (occurrence: US)
  Receive Date: 20210217
  Receipt Date: 20210217
  Transmission Date: 20210420
  Serious: Yes (Hospitalization)
  Sender: FDA-Public Use
  Company Number: US-CADILA HEALTHCARE LIMITED-US-ZYDUS-062072

PATIENT

DRUGS (1)
  1. VERAPAMIL [Suspect]
     Active Substance: VERAPAMIL HYDROCHLORIDE
     Indication: PRODUCT USED FOR UNKNOWN INDICATION
     Dosage: FORTY 240 MG TABLET
     Route: 048

REACTIONS (13)
  - Cardiogenic shock [Unknown]
  - Sinus bradycardia [Unknown]
  - Renal tubular necrosis [Unknown]
  - Thrombosis [Unknown]
  - Intentional overdose [Unknown]
  - Acidosis [Unknown]
  - Acute kidney injury [Unknown]
  - Atrioventricular block first degree [Unknown]
  - Vomiting [Unknown]
  - Hypotension [Unknown]
  - Pneumonia aspiration [Unknown]
  - Mental status changes [Recovered/Resolved]
  - Depressed level of consciousness [Recovered/Resolved]
